FAERS Safety Report 26125833 (Version 1)
Quarter: 2025Q4

REPORT INFORMATION
  Report Type: Spontaneous
  Country: US (occurrence: None)
  Receive Date: 20251204
  Receipt Date: 20251204
  Transmission Date: 20260118
  Serious: Yes (Life-Threatening, Hospitalization)
  Sender: FDA-CTU
  Company Number: None

PATIENT
  Age: 51 Year
  Sex: Female
  Weight: 86.85 kg

DRUGS (11)
  1. TERBINAFINE [Suspect]
     Active Substance: TERBINAFINE
     Indication: Onychomycosis
     Dosage: OTHER QUANTITY : 1 TABLET(S);?FREQUENCY : AT BEDTIME;?
     Route: 048
     Dates: start: 20251119, end: 20251121
  2. PLAVIX [Concomitant]
     Active Substance: CLOPIDOGREL BISULFATE
  3. ASPIRIN [Concomitant]
     Active Substance: ASPIRIN
  4. JANUVIA [Concomitant]
     Active Substance: SITAGLIPTIN PHOSPHATE
  5. METFORMIN [Concomitant]
     Active Substance: METFORMIN HYDROCHLORIDE
  6. GABAPENTIN [Concomitant]
     Active Substance: GABAPENTIN
  7. REPATHA [Concomitant]
     Active Substance: EVOLOCUMAB
  8. OZEMPIC [Concomitant]
     Active Substance: SEMAGLUTIDE
  9. LISINOPRIL [Concomitant]
     Active Substance: LISINOPRIL
  10. Synthroid. [Concomitant]
  11. Centrum multi vitamin [Concomitant]

REACTIONS (6)
  - Rash [None]
  - Skin exfoliation [None]
  - Dehydration [None]
  - Skin warm [None]
  - Sensitive skin [None]
  - Back pain [None]

NARRATIVE: CASE EVENT DATE: 20251121
